FAERS Safety Report 6283937-0 (Version None)
Quarter: 2009Q3

REPORT INFORMATION
  Report Type: 
  Country: None (occurrence: None)
  Receive Date: 20090721
  Receipt Date: 20090721
  Transmission Date: 20100115
  Serious: No
  Sender: FDA-Public Use
  Company Number: None

PATIENT
  Age: 27 Year
  Sex: Female
  Weight: 58.9676 kg

DRUGS (2)
  1. CYMBALTA [Suspect]
     Indication: DEPRESSION
     Dosage: 30MG 1 A DAY
     Dates: start: 20090311, end: 20090712
  2. CYMBALTA [Suspect]
     Indication: DISEASE RECURRENCE
     Dosage: 30MG 1 A DAY
     Dates: start: 20090311, end: 20090712

REACTIONS (9)
  - ANXIETY [None]
  - BLOOD GLUCOSE DECREASED [None]
  - CRYING [None]
  - HOSTILITY [None]
  - IMPAIRED DRIVING ABILITY [None]
  - IMPAIRED WORK ABILITY [None]
  - NAUSEA [None]
  - TREMOR [None]
  - WITHDRAWAL SYNDROME [None]
